FAERS Safety Report 8553815-2 (Version None)
Quarter: 2012Q3

REPORT INFORMATION
  Report Type: 
  Country: None (occurrence: None)
  Receive Date: 20120731
  Receipt Date: 20120717
  Transmission Date: 20120928
  Serious: Yes (Other)
  Sender: FDA-Public Use
  Company Number: JP-PFIZER INC-2012056882

PATIENT
  Age: 79 Year
  Sex: Female

DRUGS (27)
  1. CELEBREX [Suspect]
     Indication: RHEUMATOID ARTHRITIS
     Dosage: 200 MG, 2X/DAY
     Route: 048
     Dates: start: 20111116, end: 20120111
  2. BUPRENORPHINE [Concomitant]
     Dosage: UNK
  3. LORFENAMIN [Concomitant]
     Dosage: UNK
  4. EDIROL [Concomitant]
     Dosage: UNK
  5. ZOLPIDEM [Concomitant]
     Dosage: 5 MG, UNK
  6. PREDNISOLONE [Concomitant]
     Dosage: UNK
  7. BREDININ [Concomitant]
  8. ZOLOFT [Concomitant]
     Dosage: UNK
  9. ONE-ALPHA [Concomitant]
  10. FERROUS CITRATE [Concomitant]
     Dosage: UNK
  11. NEUROTROPIN [Concomitant]
  12. REMICADE [Concomitant]
     Dosage: UNK
  13. ANPLAG [Concomitant]
  14. CINAL [Concomitant]
     Dosage: UNK
  15. RECALBON [Concomitant]
     Dosage: UNK
  16. KETOPROFEN [Concomitant]
  17. GRANDAXIN [Concomitant]
  18. CANDESARTAN CILEXETIL [Concomitant]
     Dosage: UNK
  19. MAGMITT [Concomitant]
     Dosage: UNK
  20. LANSOPRAZOLE [Concomitant]
     Dosage: UNK
  21. ALLEGRA [Concomitant]
     Dosage: UNK
  22. CYANOCOBALAMIN [Concomitant]
     Dosage: UNK
  23. MOTILIUM [Concomitant]
     Dosage: UNK
  24. GASMOTIN [Concomitant]
     Dosage: UNK
  25. METHOTREXATE [Concomitant]
     Dosage: UNK
  26. PURSENIDE [Concomitant]
  27. ETODOLAC [Concomitant]
     Dosage: UNK

REACTIONS (1)
  - POLYARTERITIS NODOSA [None]
